FAERS Safety Report 8403445-8 (Version None)
Quarter: 2012Q2

REPORT INFORMATION
  Report Type: 
  Country: None (occurrence: None)
  Receive Date: 20120601
  Receipt Date: 20120523
  Transmission Date: 20120825
  Serious: Yes (Hospitalization)
  Sender: FDA-Public Use
  Company Number: US-JNJFOC-20120518982

PATIENT
  Sex: Female
  Weight: 77.5 kg

DRUGS (12)
  1. LANSOPRAZOLE [Concomitant]
  2. CALCIUM CARBONATE [Concomitant]
  3. FLUDROCORTISONE ACETATE [Concomitant]
  4. FERROUS SULFATE TAB [Concomitant]
  5. REMICADE [Suspect]
     Indication: INFLAMMATORY BOWEL DISEASE
     Route: 042
     Dates: start: 20120131, end: 20120501
  6. SODIUM CHLORIDE [Concomitant]
  7. MERCAPTOPURINE [Concomitant]
  8. TAZORAC [Concomitant]
  9. MULTI-VITAMINS [Concomitant]
  10. LOPERAMIDE [Concomitant]
  11. PREDNISONE TAB [Concomitant]
  12. SERTRALINE HYDROCHLORIDE [Concomitant]

REACTIONS (1)
  - CROHN'S DISEASE [None]
